FAERS Safety Report 5250778-2 (Version None)
Quarter: 2007Q1

REPORT INFORMATION
  Report Type: 
  Country: None (occurrence: None)
  Receive Date: 20070228
  Receipt Date: 20070226
  Transmission Date: 20070707
  Serious: Yes (Other)
  Sender: FDA-Public Use
  Company Number: US-GLAXOSMITHKLINE-A0640231A

PATIENT
  Sex: Female

DRUGS (3)
  1. CITRUCEL CAPLETS [Suspect]
     Indication: GASTROINTESTINAL DISORDER
     Route: 048
  2. BLOOD PRESSURE MEDICATION [Concomitant]
  3. EYE DROP [Concomitant]

REACTIONS (4)
  - CHOKING [None]
  - DRUG INEFFECTIVE [None]
  - MEDICATION RESIDUE [None]
  - SUFFOCATION FEELING [None]
